FAERS Safety Report 13340648 (Version 2)
Quarter: 2017Q1

REPORT INFORMATION
  Report Type: Report from Study
  Country: JP (occurrence: JP)
  Receive Date: 20170316
  Receipt Date: 20170330
  Transmission Date: 20170428
  Serious: Yes (Death, Other)
  Sender: FDA-Public Use
  Company Number: JP-TAKEDA-2014TUS005381

PATIENT
  Age: 77 Year
  Sex: Male

DRUGS (1)
  1. FEBUXOSTAT. [Suspect]
     Active Substance: FEBUXOSTAT
     Indication: GOUT
     Dosage: 20 MG, QD
     Route: 048
     Dates: start: 20120824, end: 20141219

REACTIONS (2)
  - Gout [Recovering/Resolving]
  - Cardiac failure [Fatal]

NARRATIVE: CASE EVENT DATE: 20121112
